FAERS Safety Report 9406608 (Version 1)
Quarter: 2013Q3

REPORT INFORMATION
  Report Type: Spontaneous
  Country: None (occurrence: GB)
  Receive Date: 20130718
  Receipt Date: 20130718
  Transmission Date: 20140515
  Serious: Yes (Hospitalization)
  Sender: FDA-Public Use
  Company Number: GB-ROCHE-1248349

PATIENT
  Age: 43 Year
  Sex: Male

DRUGS (2)
  1. SAQUINAVIR [Suspect]
     Indication: HIV INFECTION
     Route: 065
  2. RITONAVIR [Suspect]
     Indication: HIV INFECTION
     Route: 065

REACTIONS (1)
  - Kaposi^s sarcoma [Unknown]
